FAERS Safety Report 15133917 (Version 1)
Quarter: 2018Q3

REPORT INFORMATION
  Report Type: Spontaneous
  Country: US (occurrence: US)
  Receive Date: 20180615
  Receipt Date: 20180615
  Transmission Date: 20181010
  Serious: Yes (Death)
  Sender: FDA-Public Use
  Company Number: None

PATIENT
  Age: 21 Year
  Sex: Male
  Weight: 60.75 kg

DRUGS (3)
  1. FLUOXETINE [Concomitant]
     Active Substance: FLUOXETINE HYDROCHLORIDE
  2. BENZTROPINE MES 0.5 MG TABLET [Suspect]
     Active Substance: BENZTROPINE MESYLATE
     Indication: TREMOR
     Dosage: ?          QUANTITY:1 TABLET(S);?
     Route: 048
     Dates: start: 20150204, end: 20150222
  3. BENZTROPINE MES 0.5 MG TABLET [Suspect]
     Active Substance: BENZTROPINE MESYLATE
     Indication: ANXIETY
     Dosage: ?          QUANTITY:1 TABLET(S);?
     Route: 048
     Dates: start: 20150204, end: 20150222

REACTIONS (4)
  - Insomnia [None]
  - Hypophagia [None]
  - Emotional distress [None]
  - Death of relative [None]

NARRATIVE: CASE EVENT DATE: 20150222
